FAERS Safety Report 10218677 (Version 1)
Quarter: 2014Q2

REPORT INFORMATION
  Report Type: Spontaneous
  Country: US (occurrence: US)
  Receive Date: 20140605
  Receipt Date: 20140605
  Transmission Date: 20141212
  Serious: Yes (Hospitalization)
  Sender: FDA-Public Use
  Company Number: US-BAYER-2014-083056

PATIENT
  Age: 33 Year
  Sex: Female

DRUGS (7)
  1. YAZ [Suspect]
  2. GIANVI [Suspect]
  3. SUMATRIPTAN [Concomitant]
     Dosage: 50 MG, UNK
  4. ENDOCET [Concomitant]
     Dosage: 7.5, 500 MG
  5. BUTALBITAL W/ASPIRIN,CAFFEINE [Concomitant]
  6. INDOMETHACIN [Concomitant]
     Dosage: 75 MG, UNK
  7. POTASSIUM CHLORIDE [Concomitant]

REACTIONS (2)
  - Pelvic venous thrombosis [None]
  - Deep vein thrombosis [None]
